FAERS Safety Report 4486083-1 (Version None)
Quarter: 2004Q4

REPORT INFORMATION
  Report Type: 
  Country: None (occurrence: None)
  Receive Date: 20041021
  Receipt Date: 20040928
  Transmission Date: 20050328
  Serious: Yes (Other)
  Sender: FDA-Public Use
  Company Number: EWC041040836

PATIENT
  Age: 45 Year
  Sex: Female
  Weight: 95 kg

DRUGS (1)
  1. VANCOMYCIN [Suspect]
     Dosage: 1 G
     Dates: start: 20040821, end: 20040821

REACTIONS (3)
  - DYSPNOEA [None]
  - FLUSHING [None]
  - RASH [None]
